FAERS Safety Report 21854996 (Version 5)
Quarter: 2023Q1

REPORT INFORMATION
  Report Type: Report from Study
  Country: CA (occurrence: CA)
  Receive Date: 20230112
  Receipt Date: 20230328
  Transmission Date: 20230418
  Serious: Yes (Other)
  Sender: FDA-Public Use
  Company Number: CA-SAMSUNG BIOEPIS-SB-2023-00579

PATIENT
  Age: 18 Year
  Sex: Male
  Weight: 77.6 kg

DRUGS (6)
  1. RENFLEXIS [Suspect]
     Active Substance: INFLIXIMAB-ABDA
     Indication: Colitis ulcerative
     Dosage: VIALS:5, RENFLEXIS X 1 YEAR PRIOR
     Route: 042
     Dates: end: 20230103
  2. RENFLEXIS [Suspect]
     Active Substance: INFLIXIMAB-ABDA
     Dosage: UNKNOWN
     Route: 065
  3. RENFLEXIS [Suspect]
     Active Substance: INFLIXIMAB-ABDA
     Dosage: UNKNOWN
     Route: 065
     Dates: start: 20230112
  4. BENADRYL [Suspect]
     Active Substance: DIPHENHYDRAMINE HYDROCHLORIDE
     Indication: Premedication
     Dosage: FREQUENCY:ONCE
     Route: 042
     Dates: start: 20230103
  5. ACETAMINOPHEN [Concomitant]
     Active Substance: ACETAMINOPHEN
     Indication: Premedication
     Route: 048
  6. DIPHENHYDRAMINE [Concomitant]
     Active Substance: DIPHENHYDRAMINE
     Indication: Premedication
     Route: 042

REACTIONS (10)
  - Body temperature increased [Recovered/Resolved]
  - Infusion site rash [Recovered/Resolved]
  - Infusion site erythema [Recovered/Resolved]
  - Infusion site papule [Recovered/Resolved]
  - Infusion site pain [Recovered/Resolved]
  - Fatigue [Recovered/Resolved]
  - Blood pressure abnormal [Recovered/Resolved]
  - Incorrect drug administration rate [Unknown]
  - Somnolence [Recovered/Resolved]
  - Product use issue [Unknown]

NARRATIVE: CASE EVENT DATE: 20230103
